FAERS Safety Report 9257472 (Version 1)
Quarter: 2013Q1

REPORT INFORMATION
  Report Type: Spontaneous
  Country: US (occurrence: None)
  Receive Date: 20121212
  Receipt Date: 20121212
  Transmission Date: 20140127
  Serious: No
  Sender: FDA-Public Use
  Company Number: 1207USA000747

PATIENT
  Age: 62 Year
  Sex: Female

DRUGS (9)
  1. VICTRELIS [Suspect]
     Indication: HEPATITIS C
     Route: 048
     Dates: start: 201201
  2. RIBAPAK [Suspect]
  3. PEGASYS [Suspect]
  4. ADVAIR (FLUTICASONE PROPIONATE, SALMETEROL XINAFOATE) [Concomitant]
  5. VITAMINE D3 (CHOLECALCIFEROL) [Concomitant]
  6. SYNTHROID (LEVOTHYROXINE SODIUM) [Concomitant]
  7. EXFORGE (AMLODIPINE BESYLATE, VALSARTAN) [Concomitant]
  8. CALCIUM ER (CALCIUM (UNSPECIFIED)) [Concomitant]
  9. FISH OIL (OMEGA-3 MARINE TRIGLYCERIDES) [Concomitant]

REACTIONS (1)
  - Haemoglobin decreased [None]
